FAERS Safety Report 5580546-3 (Version None)
Quarter: 2008Q1

REPORT INFORMATION
  Report Type: 
  Country: None (occurrence: None)
  Receive Date: 20080103
  Receipt Date: 20080102
  Transmission Date: 20080703
  Serious: Yes (Other)
  Sender: FDA-Public Use
  Company Number: US-ALLERGAN-0800022US

PATIENT
  Sex: Male

DRUGS (3)
  1. REFRESH TEARS [Suspect]
     Indication: FOREIGN BODY IN EYE
     Dosage: UNK, UNKNOWN
     Route: 047
     Dates: start: 20071011
  2. REFRESH TEARS [Suspect]
     Indication: OCULAR HYPERAEMIA
  3. REFRESH TEARS [Suspect]
     Indication: EYE IRRITATION

REACTIONS (5)
  - CORNEAL ABRASION [None]
  - EXPIRED DRUG ADMINISTERED [None]
  - EYE IRRITATION [None]
  - OCULAR HYPERAEMIA [None]
  - ULCERATIVE KERATITIS [None]
